FAERS Safety Report 7502033-5 (Version None)
Quarter: 2011Q2

REPORT INFORMATION
  Report Type: 
  Country: None (occurrence: None)
  Receive Date: 20110525
  Receipt Date: 20110513
  Transmission Date: 20111010
  Serious: Yes (Hospitalization)
  Sender: FDA-Public Use
  Company Number: JP-BAYER-200812650BYL

PATIENT
  Age: 60 Year
  Sex: Male
  Weight: 60.9 kg

DRUGS (25)
  1. NEXAVAR [Suspect]
     Indication: RENAL CELL CARCINOMA
     Dosage: 400 MG, BID
     Route: 048
     Dates: start: 20081023, end: 20081116
  2. UNASYN [Concomitant]
     Dosage: 3 G (DAILY DOSE), , IV DRIP
     Route: 041
     Dates: start: 20081028, end: 20081029
  3. SEISHOKU [Concomitant]
     Dosage: 200 ML (DAILY DOSE), , IV DRIP
     Route: 041
     Dates: start: 20081104, end: 20081104
  4. UNASYN [Concomitant]
     Dosage: 6 G (DAILY DOSE), , IV DRIP
     Route: 041
     Dates: start: 20081105, end: 20081107
  5. SEISHOKU [Concomitant]
     Dosage: 400 ML (DAILY DOSE), , IV DRIP
     Route: 041
     Dates: start: 20081105, end: 20081107
  6. MINOCYCLINE HCL [Concomitant]
     Dosage: 100 MG (DAILY DOSE), , IV DRIP
     Route: 041
     Dates: start: 20081104, end: 20081104
  7. MINOCYCLINE HCL [Concomitant]
     Dosage: 200 MG (DAILY DOSE), , IV DRIP
     Route: 041
     Dates: start: 20081129, end: 20081219
  8. BETAMETHASONE [Concomitant]
     Dosage: 2 MG (DAILY DOSE), , ORAL
     Route: 048
     Dates: start: 20081220, end: 20090108
  9. PANALDINE [Concomitant]
     Dosage: 300 MG (DAILY DOSE), , ORAL
     Route: 048
     Dates: start: 20081025
  10. TOFRANIL [Concomitant]
     Dosage: 20 MG (DAILY DOSE), , ORAL
     Route: 048
     Dates: start: 20090618, end: 20090814
  11. CEFZON [Concomitant]
     Dosage: 750 MG (DAILY DOSE), , ORAL
     Route: 048
     Dates: start: 20081025, end: 20081031
  12. NEXAVAR [Suspect]
     Dosage: 400 MG (DAILY DOSE), , ORAL
     Route: 048
     Dates: start: 20090220, end: 20090408
  13. NEXAVAR [Suspect]
     Dosage: 800 MG (DAILY DOSE), , ORAL
     Route: 048
     Dates: start: 20090523, end: 20090925
  14. SEISHOKU [Concomitant]
     Dosage: 100 ML (DAILY DOSE), , IV DRIP
     Route: 041
     Dates: start: 20081028, end: 20081029
  15. BETAMETHASONE [Concomitant]
     Dosage: 1.5 MG (DAILY DOSE), , ORAL
     Route: 048
     Dates: start: 20090109, end: 20090219
  16. CEFOPERAZONE SODIUM [Concomitant]
     Dosage: 1 G (DAILY DOSE), , IV DRIP
     Route: 041
     Dates: start: 20081115, end: 20081118
  17. NEXAVAR [Suspect]
     Dosage: 800 MG (DAILY DOSE), , ORAL
     Route: 048
     Dates: start: 20091003, end: 20100328
  18. CORTICOSTEROID NOS [Concomitant]
     Route: 048
  19. SEISHOKU [Concomitant]
     Dosage: 100 ML (DAILY DOSE), , IV DRIP
     Route: 041
     Dates: start: 20081031, end: 20081103
  20. MECOBALAMIN [Concomitant]
     Dosage: 500 ?G (DAILY DOSE), , ORAL
     Route: 048
     Dates: start: 20081025
  21. UNASYN [Concomitant]
     Dosage: 3 G (DAILY DOSE), , IV DRIP
     Route: 041
     Dates: start: 20081031, end: 20091104
  22. MINOCYCLINE HCL [Concomitant]
     Dosage: 200 MG (DAILY DOSE), , IV DRIP
     Route: 041
     Dates: start: 20081105, end: 20081107
  23. BETAMETHASONE [Concomitant]
     Dosage: 3 MG (DAILY DOSE), , ORAL
     Route: 048
     Dates: start: 20081025, end: 20081219
  24. NEXAVAR [Suspect]
     Dosage: 600 MG (DAILY DOSE), , ORAL
     Route: 048
     Dates: start: 20081201, end: 20090109
  25. BETAMETHASONE [Concomitant]
     Dosage: 1 MG (DAILY DOSE), , ORAL
     Route: 048
     Dates: start: 20090220, end: 20090430

REACTIONS (10)
  - CONSTIPATION [None]
  - HEPATIC FUNCTION ABNORMAL [None]
  - NAUSEA [None]
  - PALMAR-PLANTAR ERYTHRODYSAESTHESIA SYNDROME [None]
  - VOMITING [None]
  - IMPAIRED HEALING [None]
  - PYREXIA [None]
  - DECUBITUS ULCER [None]
  - COLITIS ISCHAEMIC [None]
  - ERYTHEMA [None]
